FAERS Safety Report 15013307 (Version 2)
Quarter: 2018Q2

REPORT INFORMATION
  Report Type: Spontaneous
  Country: US (occurrence: US)
  Receive Date: 20180614
  Receipt Date: 20180620
  Transmission Date: 20180711
  Serious: Yes (Hospitalization, Other)
  Sender: FDA-Public Use
  Company Number: US-PFIZER INC-2018239760

PATIENT
  Age: 63 Year
  Sex: Male

DRUGS (1)
  1. XELJANZ XR [Suspect]
     Active Substance: TOFACITINIB CITRATE
     Dosage: 11 MG, UNK
     Route: 048

REACTIONS (9)
  - Infection [Unknown]
  - Hernia [Unknown]
  - Abdominal abscess [Unknown]
  - Liver function test increased [Unknown]
  - Bronchitis [Unknown]
  - Platelet count decreased [Unknown]
  - Malaise [Unknown]
  - Pneumonia [Unknown]
  - Dementia [Unknown]
